FAERS Safety Report 6781856-4 (Version None)
Quarter: 2010Q2

REPORT INFORMATION
  Report Type: 
  Country: None (occurrence: None)
  Receive Date: 20100621
  Receipt Date: 20100610
  Transmission Date: 20101027
  Serious: Yes (Hospitalization)
  Sender: FDA-Public Use
  Company Number: ES-PERRIGO-10ES010488

PATIENT
  Age: 11 Year
  Sex: Male

DRUGS (1)
  1. ACETAMINOPHEN SLOW RELEASE [Suspect]
     Indication: NASOPHARYNGITIS
     Dosage: UNK
     Route: 048

REACTIONS (5)
  - MALAISE [None]
  - PYREXIA [None]
  - RASH ERYTHEMATOUS [None]
  - SKIN LESION [None]
  - STEVENS-JOHNSON SYNDROME [None]
